FAERS Safety Report 11916368 (Version 2)
Quarter: 2016Q2

REPORT INFORMATION
  Report Type: Spontaneous
  Country: US (occurrence: US)
  Receive Date: 20160114
  Receipt Date: 20160418
  Transmission Date: 20160815
  Serious: Yes (Other)
  Sender: FDA-Public Use
  Company Number: US-ELI_LILLY_AND_COMPANY-US201601004932

PATIENT
  Sex: Female
  Weight: 94.8 kg

DRUGS (3)
  1. PROZAC [Suspect]
     Active Substance: FLUOXETINE HYDROCHLORIDE
     Indication: DEPRESSION
     Dosage: UNK UNK, UNKNOWN
     Route: 065
  2. LYRICA [Suspect]
     Active Substance: PREGABALIN
     Dosage: 100 MG, BID
     Route: 048
     Dates: start: 201510
  3. LYRICA [Suspect]
     Active Substance: PREGABALIN
     Indication: NEURALGIA
     Dosage: 100 MG, BID
     Route: 048
     Dates: start: 2008

REACTIONS (9)
  - Blood cholesterol [Not Recovered/Not Resolved]
  - Suicidal ideation [Recovering/Resolving]
  - Fibromyalgia [Unknown]
  - Sleep disorder due to a general medical condition [Unknown]
  - Depression [Unknown]
  - Arterial injury [Unknown]
  - Neuralgia [Unknown]
  - Peroneal nerve palsy [Unknown]
  - Diabetes mellitus [Not Recovered/Not Resolved]
